FAERS Safety Report 7321392-X (Version None)
Quarter: 2011Q1

REPORT INFORMATION
  Report Type: 
  Country: None (occurrence: None)
  Receive Date: 20110228
  Receipt Date: 20110215
  Transmission Date: 20110831
  Serious: Yes (Hospitalization)
  Sender: FDA-Public Use
  Company Number: US-PURDUE-USA-2011-0064556

PATIENT
  Sex: Female

DRUGS (3)
  1. OXYCONTIN [Suspect]
     Indication: MULTIPLE SCLEROSIS
  2. OXYCONTIN [Suspect]
     Indication: RHEUMATOID ARTHRITIS
     Dosage: 40 MG, SEE TEXT
     Dates: start: 20100901
  3. OXYCODONE [Concomitant]
     Indication: BREAKTHROUGH PAIN
     Dosage: 30 MG, Q4H PRN

REACTIONS (8)
  - GAIT DISTURBANCE [None]
  - PAIN [None]
  - DRUG HYPERSENSITIVITY [None]
  - URTICARIA [None]
  - UNEVALUABLE EVENT [None]
  - DRUG INEFFECTIVE [None]
  - DECREASED ACTIVITY [None]
  - BLOOD PRESSURE SYSTOLIC INCREASED [None]
